FAERS Safety Report 5544223-7 (Version None)
Quarter: 2007Q4

REPORT INFORMATION
  Report Type: 
  Country: None (occurrence: None)
  Receive Date: 20071210
  Receipt Date: 20061128
  Transmission Date: 20080405
  Serious: No
  Sender: FDA-Public Use
  Company Number: US-AMGEN-KDL201601

PATIENT
  Sex: Female

DRUGS (2)
  1. ENBREL [Suspect]
     Indication: RHEUMATOID ARTHRITIS
     Route: 058
     Dates: start: 19981101
  2. METHOTREXATE [Concomitant]

REACTIONS (5)
  - DRY MOUTH [None]
  - GLOSSODYNIA [None]
  - LIP DISORDER [None]
  - STOMATITIS [None]
  - SWOLLEN TONGUE [None]
